FAERS Safety Report 9918072 (Version 2)
Quarter: 2014Q1

REPORT INFORMATION
  Report Type: Spontaneous
  Country: US (occurrence: US)
  Receive Date: 20140223
  Receipt Date: 20140306
  Transmission Date: 20141002
  Serious: No
  Sender: FDA-Public Use
  Company Number: US-009507513-1402USA007186

PATIENT
  Sex: Female
  Weight: 76.64 kg

DRUGS (13)
  1. OXYTROL FOR WOMEN [Suspect]
     Indication: HYPERTONIC BLADDER
     Dosage: UNK, Q4D
     Route: 048
     Dates: start: 20131120
  2. OXYTROL FOR WOMEN [Suspect]
     Indication: STRESS URINARY INCONTINENCE
  3. SYNTHROID [Concomitant]
     Indication: HYPOTHYROIDISM
     Dosage: 50 MICROGRAM, QD
  4. MAXIDE [Concomitant]
     Indication: OEDEMA
     Dosage: UNK, QD
  5. KLOR-CON [Concomitant]
     Indication: OEDEMA
     Dosage: 10 MG, BID
  6. OGEN [Concomitant]
     Indication: HORMONE REPLACEMENT THERAPY
     Dosage: 1.5 MG, QD
  7. ALLEGRA [Concomitant]
     Indication: RHINITIS ALLERGIC
     Dosage: 10 MG, BID
  8. TYLENOL [Concomitant]
     Indication: SACROILIITIS
     Dosage: UNK, UNKNOWN
  9. PRAVACOL [Concomitant]
     Indication: PRODUCT USED FOR UNKNOWN INDICATION
     Dosage: 10 MG, QPM
  10. CALCIUM D (CALCIUM CARBONATE (+) CHOLECALCIFEROL) [Concomitant]
     Indication: PRODUCT USED FOR UNKNOWN INDICATION
     Dosage: UNK, TID
  11. OMEGA-3 MARINE TRIGLYCERIDES [Concomitant]
     Indication: PRODUCT USED FOR UNKNOWN INDICATION
     Dosage: UNK, BID
  12. GARLIC [Concomitant]
     Indication: PRODUCT USED FOR UNKNOWN INDICATION
     Dosage: 1 MG, BID
  13. CHONDROITIN SULFATE SODIUM (+) GLUCOSAMINE SULFATE [Concomitant]
     Indication: PRODUCT USED FOR UNKNOWN INDICATION
     Dosage: UNK, BID

REACTIONS (3)
  - Skin exfoliation [Unknown]
  - Dry skin [Unknown]
  - Product quality issue [Unknown]
